FAERS Safety Report 8062786-7 (Version None)
Quarter: 2012Q1

REPORT INFORMATION
  Report Type: 
  Country: None (occurrence: None)
  Receive Date: 20120118
  Receipt Date: 20120104
  Transmission Date: 20120608
  Serious: Yes (Hospitalization, Other)
  Sender: FDA-Public Use
  Company Number: 2012MA000161

PATIENT
  Sex: Male
  Weight: 83.9154 kg

DRUGS (25)
  1. LASIX [Concomitant]
  2. PLAVIX [Concomitant]
  3. PRAVACHOL [Concomitant]
  4. SPIRONOLACTONE [Concomitant]
  5. NITROGLYCERIN [Concomitant]
  6. ANCEF [Concomitant]
  7. LIBRIUM [Concomitant]
  8. CLORAZEPATE DIPOTASSIUM [Concomitant]
  9. POTASSIUM CHLORIDE [Concomitant]
  10. ALTACE [Concomitant]
  11. AMBIEN [Concomitant]
  12. APAP TAB [Concomitant]
  13. AMARYL [Concomitant]
  14. BACLOFEN [Concomitant]
  15. LISINOPRIL [Concomitant]
  16. TOPROL-XL [Concomitant]
  17. DIGOXIN [Suspect]
     Dosage: 0.25 MG
  18. ASPIRIN [Concomitant]
  19. CLINORIL [Concomitant]
  20. GLIPIZIDE [Concomitant]
  21. HUMIBID [Concomitant]
  22. MUCINEX [Concomitant]
  23. RESTORIL [Concomitant]
  24. METFORMIN HCL [Concomitant]
  25. DARVOCET [Concomitant]

REACTIONS (36)
  - ONYCHOMYCOSIS [None]
  - ARTERIOSCLEROSIS CORONARY ARTERY [None]
  - TRICUSPID VALVE INCOMPETENCE [None]
  - NAUSEA [None]
  - HEADACHE [None]
  - CARDIAC MURMUR [None]
  - MYOCARDIAL INFARCTION [None]
  - ANGINA UNSTABLE [None]
  - SYNCOPE [None]
  - PRESYNCOPE [None]
  - ELECTROCARDIOGRAM QRS COMPLEX ABNORMAL [None]
  - AORTIC VALVE INCOMPETENCE [None]
  - BLOOD PRESSURE DECREASED [None]
  - CHEST DISCOMFORT [None]
  - HYPERHIDROSIS [None]
  - DYSPNOEA EXERTIONAL [None]
  - ASTHENIA [None]
  - TACHYCARDIA [None]
  - CONSTIPATION [None]
  - ARRHYTHMIA [None]
  - PANIC REACTION [None]
  - OBSTRUCTIVE AIRWAYS DISORDER [None]
  - BUNDLE BRANCH BLOCK [None]
  - DIABETIC NEUROPATHY [None]
  - CARDIAC FAILURE CONGESTIVE [None]
  - PLEURAL EFFUSION [None]
  - ATRIOVENTRICULAR BLOCK COMPLETE [None]
  - ESSENTIAL HYPERTENSION [None]
  - ISCHAEMIC CARDIOMYOPATHY [None]
  - EJECTION FRACTION DECREASED [None]
  - PAIN IN EXTREMITY [None]
  - PALPITATIONS [None]
  - PULMONARY OEDEMA [None]
  - DIZZINESS [None]
  - BLOOD PRESSURE INCREASED [None]
  - MITRAL VALVE INCOMPETENCE [None]
